FAERS Safety Report 18818431 (Version 1)
Quarter: 2021Q1

REPORT INFORMATION
  Report Type: Spontaneous
  Country: JP (occurrence: JP)
  Receive Date: 20210202
  Receipt Date: 20210202
  Transmission Date: 20210419
  Serious: Yes (Other)
  Sender: FDA-Public Use
  Company Number: JP-JIANGSU HENGRUI MEDICINE CO., LTD.-2106152

PATIENT
  Age: 72 Year
  Sex: Female

DRUGS (1)
  1. LETROZOLE TABLETS USP, 2.5?MG [Suspect]
     Active Substance: LETROZOLE
     Indication: BREAST CANCER RECURRENT

REACTIONS (1)
  - Interstitial lung disease [Unknown]
